FAERS Safety Report 7443662-7 (Version None)
Quarter: 2011Q2

REPORT INFORMATION
  Report Type: 
  Country: None (occurrence: None)
  Receive Date: 20110428
  Receipt Date: 20110422
  Transmission Date: 20111010
  Serious: Yes (Other)
  Sender: FDA-Public Use
  Company Number: US-AMGEN-KDL393241

PATIENT
  Age: 69 Year
  Sex: Female

DRUGS (1)
  1. ENBREL [Suspect]
     Indication: RHEUMATOID ARTHRITIS
     Dosage: 50 MG, QWK
     Route: 058
     Dates: start: 19980101, end: 20101001

REACTIONS (20)
  - ABDOMINAL DISCOMFORT [None]
  - BRONCHITIS [None]
  - EYE INFECTION [None]
  - BLEPHARITIS [None]
  - PIGMENTATION DISORDER [None]
  - CORRECTIVE LENS USER [None]
  - WEIGHT DECREASED [None]
  - HYPERSENSITIVITY [None]
  - LOSS OF CONSCIOUSNESS [None]
  - FALL [None]
  - OCULAR HYPERAEMIA [None]
  - DECREASED APPETITE [None]
  - EYE PAIN [None]
  - INJECTION SITE PAIN [None]
  - IMPAIRED HEALING [None]
  - DRY EYE [None]
  - EYE INFLAMMATION [None]
  - CATARACT [None]
  - RHEUMATOID ARTHRITIS [None]
  - INTRAOCULAR PRESSURE INCREASED [None]
